FAERS Safety Report 23635459 (Version 1)
Quarter: 2024Q1

REPORT INFORMATION
  Report Type: Other
  Country: DE (occurrence: None)
  Receive Date: 20240315
  Receipt Date: 20240315
  Transmission Date: 20240409
  Serious: Yes (Other)
  Sender: FDA-Public Use
  Company Number: DE-ROCHE-3524153

PATIENT

DRUGS (4)
  1. RITUXIMAB [Suspect]
     Active Substance: RITUXIMAB
     Indication: Non-Hodgkin^s lymphoma
     Dosage: ON DAY 0 OR 1
     Route: 042
  2. GEMCITABINE [Suspect]
     Active Substance: GEMCITABINE
     Indication: Non-Hodgkin^s lymphoma
     Dosage: ON DAYS 1 AND 15
     Route: 042
  3. OXALIPLATIN [Suspect]
     Active Substance: OXALIPLATIN
     Indication: Non-Hodgkin^s lymphoma
     Dosage: 3+ 3 DESIGN ON DAYS 1 AND 15
     Route: 042
  4. OXALIPLATIN [Suspect]
     Active Substance: OXALIPLATIN
     Dosage: UNTIL THE MAXIMUM TOLERATED DOSE (MTD) WAS REACHED
     Route: 042

REACTIONS (17)
  - Anaemia [Unknown]
  - Neurotoxicity [Unknown]
  - Thrombocytopenia [Unknown]
  - Vomiting [Unknown]
  - Leukopenia [Unknown]
  - Granulocytopenia [Unknown]
  - Pyrexia [Unknown]
  - Infection [Unknown]
  - Nausea [Unknown]
  - Mucosal inflammation [Unknown]
  - Constipation [Unknown]
  - Diarrhoea [Unknown]
  - Cardiac dysfunction [Unknown]
  - Arrhythmia [Unknown]
  - Hepatotoxicity [Unknown]
  - Haemorrhage [Unknown]
  - Alopecia [Unknown]
